FAERS Safety Report 8547852-1 (Version None)
Quarter: 2012Q3

REPORT INFORMATION
  Report Type: 
  Country: None (occurrence: None)
  Receive Date: 20120727
  Receipt Date: 20120719
  Transmission Date: 20120928
  Serious: Yes (Hospitalization, Other)
  Sender: FDA-Public Use
  Company Number: US-ASTRAZENECA-2010SE48103

PATIENT
  Age: 73 Year
  Sex: Female

DRUGS (3)
  1. NEXIUM [Suspect]
     Indication: GASTROOESOPHAGEAL REFLUX DISEASE
     Route: 048
     Dates: start: 20070101
  2. NEXIUM [Suspect]
     Route: 048
     Dates: start: 20070101
  3. PRILOSEC [Suspect]
     Indication: GASTROOESOPHAGEAL REFLUX DISEASE
     Route: 048

REACTIONS (28)
  - JOINT INJURY [None]
  - URINARY TRACT INFECTION [None]
  - CHRONIC OBSTRUCTIVE PULMONARY DISEASE [None]
  - STRESS URINARY INCONTINENCE [None]
  - BRONCHIECTASIS [None]
  - NECK PAIN [None]
  - BACK PAIN [None]
  - ARTHRITIS [None]
  - DYSPEPSIA [None]
  - VERTIGO [None]
  - VAGINAL PROLAPSE [None]
  - DRUG DOSE OMISSION [None]
  - PNEUMONIA FUNGAL [None]
  - EMPHYSEMA [None]
  - INTERVERTEBRAL DISC DEGENERATION [None]
  - INTERVERTEBRAL DISC PROTRUSION [None]
  - DRUG INEFFECTIVE [None]
  - TENDON RUPTURE [None]
  - BRONCHITIS [None]
  - DIZZINESS [None]
  - RECTOCELE [None]
  - CHEST PAIN [None]
  - HAEMATURIA [None]
  - AORTIC ARTERIOSCLEROSIS [None]
  - PANCREAS LIPOMATOSIS [None]
  - DYSPNOEA [None]
  - SINUSITIS [None]
  - HEADACHE [None]
